FAERS Safety Report 16052681 (Version 5)
Quarter: 2019Q2

REPORT INFORMATION
  Report Type: Report from Study
  Country: US (occurrence: US)
  Receive Date: 20190308
  Receipt Date: 20190619
  Transmission Date: 20190711
  Serious: Yes (Death, Hospitalization)
  Sender: FDA-Public Use
  Company Number: US-EISAI MEDICAL RESEARCH-EC-2019-053137

PATIENT
  Age: 77 Year
  Sex: Male
  Weight: 75.5 kg

DRUGS (26)
  1. TAMSULOSIN [Concomitant]
     Active Substance: TAMSULOSIN
  2. ALOE VERA [Concomitant]
     Active Substance: ALOE VERA LEAF
  3. LOSARTAN. [Concomitant]
     Active Substance: LOSARTAN
  4. ASCORBIC ACID. [Concomitant]
     Active Substance: ASCORBIC ACID
  5. ATORVASTATIN [Concomitant]
     Active Substance: ATORVASTATIN
  6. MULTIVITAMIN [Concomitant]
     Active Substance: VITAMINS
  7. PEMBROLIZUMAB. [Suspect]
     Active Substance: PEMBROLIZUMAB
     Indication: NEOPLASM
     Route: 041
     Dates: start: 20181213, end: 20190213
  8. NIFEDIPINE. [Concomitant]
     Active Substance: NIFEDIPINE
  9. PANTOPRAZOLE [Concomitant]
     Active Substance: PANTOPRAZOLE
  10. ASPIRIN. [Concomitant]
     Active Substance: ASPIRIN
  11. OMGEA-3-DHA EPA-VITAMIN D3 [Concomitant]
  12. ELIQUIS [Concomitant]
     Active Substance: APIXABAN
  13. LEVOTHYROXINE. [Concomitant]
     Active Substance: LEVOTHYROXINE
  14. LENVATINIB [Suspect]
     Active Substance: LENVATINIB
     Route: 048
     Dates: start: 20190107, end: 20190305
  15. ISOSORBIDE MONONITRATE. [Concomitant]
     Active Substance: ISOSORBIDE MONONITRATE
  16. PSEUDOEPHEDRINE. [Concomitant]
     Active Substance: PSEUDOEPHEDRINE HYDROCHLORIDE
  17. ABH [Concomitant]
  18. LENVATINIB [Suspect]
     Active Substance: LENVATINIB
     Indication: NEOPLASM
     Route: 048
     Dates: start: 20181213, end: 20190102
  19. METOPROLOL TARTRATE. [Concomitant]
     Active Substance: METOPROLOL TARTRATE
  20. LACTOBACILLUS ACIDOPHILUS [Concomitant]
     Active Substance: LACTOBACILLUS ACIDOPHILUS
  21. HYDROCODONE-ACETAMINOPHEN [Concomitant]
     Active Substance: ACETAMINOPHEN\HYDROCODONE
  22. ZINC. [Concomitant]
     Active Substance: ZINC
  23. MAGIC MOUTHWASH [Concomitant]
     Active Substance: DIPHENHYDRAMINE HYDROCHLORIDE\LIDOCAINE HYDROCHLORIDE\NYSTATIN
  24. AMLODIPINE [Concomitant]
     Active Substance: AMLODIPINE BESYLATE
  25. ZOLPIDEM [Concomitant]
     Active Substance: ZOLPIDEM\ZOLPIDEM TARTRATE
  26. MUPIROCIN. [Concomitant]
     Active Substance: MUPIROCIN

REACTIONS (4)
  - Acute kidney injury [Recovered/Resolved]
  - Acute myocardial infarction [Not Recovered/Not Resolved]
  - Dysphagia [Not Recovered/Not Resolved]
  - Dyspnoea [Not Recovered/Not Resolved]

NARRATIVE: CASE EVENT DATE: 20190306
